FAERS Safety Report 5679944-9 (Version None)
Quarter: 2008Q1

REPORT INFORMATION
  Report Type: 
  Country: None (occurrence: None)
  Receive Date: 20080324
  Receipt Date: 20080313
  Transmission Date: 20080703
  Serious: Yes (Death, Other)
  Sender: FDA-Public Use
  Company Number: 2007-04013

PATIENT
  Age: 56 Year
  Sex: Male
  Weight: 48 kg

DRUGS (2)
  1. VELCADE [Suspect]
     Indication: MULTIPLE MYELOMA
     Dosage: 1.90 MG, INTRAVENOUS
     Route: 042
     Dates: start: 20071026, end: 20071105
  2. DEXAMETHASONE TAB [Suspect]
     Indication: MULTIPLE MYELOMA
     Dosage: 8.00 MG, INTRAVENOUS
     Route: 042
     Dates: start: 20071026, end: 20071106

REACTIONS (6)
  - ABDOMINAL PAIN [None]
  - ABNORMAL BEHAVIOUR [None]
  - ALTERED STATE OF CONSCIOUSNESS [None]
  - DISEASE PROGRESSION [None]
  - MEMORY IMPAIRMENT [None]
  - PAIN IN EXTREMITY [None]
